FAERS Safety Report 16765817 (Version 1)
Quarter: 2019Q3

REPORT INFORMATION
  Report Type: Spontaneous
  Country: FR (occurrence: FR)
  Receive Date: 20190903
  Receipt Date: 20190903
  Transmission Date: 20191005
  Serious: Yes (Hospitalization)
  Sender: FDA-Public Use
  Company Number: FR-SUN PHARMACEUTICAL INDUSTRIES LTD-2019RR-219642

PATIENT
  Age: 14 Year
  Sex: Female
  Weight: 68.9 kg

DRUGS (1)
  1. VENLAFAXINE [Suspect]
     Active Substance: VENLAFAXINE HYDROCHLORIDE
     Indication: INTENTIONAL OVERDOSE
     Dosage: 10 A 12 COMPRIMES DE 75MG
     Route: 048
     Dates: start: 20190803, end: 20190803

REACTIONS (6)
  - Electrocardiogram QT prolonged [Recovered/Resolved]
  - Poisoning deliberate [Recovered/Resolved]
  - Tachycardia [Recovered/Resolved]
  - Abdominal pain [Recovered/Resolved]
  - Exophthalmos [Recovered/Resolved]
  - Vomiting [Recovered/Resolved]

NARRATIVE: CASE EVENT DATE: 201908
